FAERS Safety Report 9198720 (Version 3)
Quarter: 2013Q2

REPORT INFORMATION
  Report Type: Spontaneous
  Country: US (occurrence: US)
  Receive Date: 20130329
  Receipt Date: 20130528
  Transmission Date: 20140414
  Serious: Yes (Other)
  Sender: FDA-Public Use
  Company Number: US-JNJFOC-20130312383

PATIENT
  Sex: Female
  Weight: 115.21 kg

DRUGS (6)
  1. INVEGA SUSTENNA [Suspect]
     Indication: SCHIZOPHRENIA
     Route: 030
     Dates: start: 20130121
  2. METOPROLOL [Concomitant]
     Indication: HYPERTENSION
     Route: 065
  3. DIOVAN [Concomitant]
     Indication: HYPERTENSION
     Route: 065
  4. HCTZ [Concomitant]
     Indication: HYPERTENSION
     Route: 065
  5. TRAZODONE [Concomitant]
     Indication: DEPRESSION
     Route: 065
  6. AMLODIPINE [Concomitant]
     Indication: HYPERTENSION
     Route: 065

REACTIONS (2)
  - Convulsion [Recovered/Resolved]
  - Loss of consciousness [Unknown]
